FAERS Safety Report 7047344-5 (Version None)
Quarter: 2010Q4

REPORT INFORMATION
  Report Type: 
  Country: None (occurrence: None)
  Receive Date: 20101015
  Receipt Date: 20101007
  Transmission Date: 20110411
  Serious: Yes (Other)
  Sender: FDA-Public Use
  Company Number: PHHY2010US67550

PATIENT
  Age: 17 Year
  Sex: Female

DRUGS (1)
  1. SANDIMMUNE [Suspect]

REACTIONS (4)
  - APLASTIC ANAEMIA [None]
  - HAEMORRHAGE [None]
  - HEPATOTOXICITY [None]
  - PLATELET COUNT DECREASED [None]
